FAERS Safety Report 17043913 (Version 2)
Quarter: 2019Q4

REPORT INFORMATION
  Report Type: Spontaneous
  Country: US (occurrence: US)
  Receive Date: 20191118
  Receipt Date: 20191206
  Transmission Date: 20200122
  Serious: Yes (Hospitalization)
  Sender: FDA-Public Use
  Company Number: US-MALLINCKRODT-T201907420

PATIENT
  Age: 62 Year
  Sex: Female
  Weight: 62 kg

DRUGS (6)
  1. H.P. ACTHAR [Suspect]
     Active Substance: CORTICOTROPIN
     Indication: RHEUMATOID ARTHRITIS
     Dosage: 80 UNITS/1ML, FIVE TIMES WEEKLY, AS DIRECTED
     Route: 058
     Dates: start: 201812
  2. ROMOSOZUMAB AQQG [Suspect]
     Active Substance: ROMOSOZUMAB-AQQG
     Indication: RHEUMATOID ARTHRITIS
     Dosage: 210 MILLIGRAM (2 SYRINGES), EVERY MONTH
     Route: 058
     Dates: start: 201909
  3. ROMOSOZUMAB AQQG [Suspect]
     Active Substance: ROMOSOZUMAB-AQQG
     Indication: OSTEOPOROSIS
  4. H.P. ACTHAR [Suspect]
     Active Substance: CORTICOTROPIN
     Indication: OSTEOPOROSIS
  5. H.P. ACTHAR [Suspect]
     Active Substance: CORTICOTROPIN
     Indication: STRESS FRACTURE
  6. ROMOSOZUMAB AQQG [Suspect]
     Active Substance: ROMOSOZUMAB-AQQG
     Indication: STRESS FRACTURE

REACTIONS (3)
  - Hip fracture [Unknown]
  - Chronic obstructive pulmonary disease [Unknown]
  - Fractured sacrum [Unknown]

NARRATIVE: CASE EVENT DATE: 20191024
